FAERS Safety Report 6670747-5 (Version None)
Quarter: 2010Q2

REPORT INFORMATION
  Report Type: 
  Country: None (occurrence: None)
  Receive Date: 20100407
  Receipt Date: 20100328
  Transmission Date: 20101027
  Serious: Yes (Other)
  Sender: FDA-Public Use
  Company Number: PHHY2010BD20382

PATIENT
  Age: 71 Year
  Sex: Female
  Weight: 47 kg

DRUGS (7)
  1. EXELON [Suspect]
     Indication: DEMENTIA
     Dosage: 9.5 MG, QD
     Route: 062
     Dates: start: 20100307, end: 20100325
  2. EXELON [Suspect]
     Dosage: 4.6 MG, QD
  3. CLOPIDOGREL [Concomitant]
  4. BETA BLOCKING AGENTS [Concomitant]
  5. INDAPAMIDE [Concomitant]
  6. ATORVASTATIN [Concomitant]
  7. INSULIN [Concomitant]

REACTIONS (3)
  - HEADACHE [None]
  - RESTLESSNESS [None]
  - VOMITING [None]
